FAERS Safety Report 6256988-X (Version None)
Quarter: 2009Q3

REPORT INFORMATION
  Report Type: 
  Country: None (occurrence: None)
  Receive Date: 20090706
  Receipt Date: 20090629
  Transmission Date: 20100115
  Serious: Yes (Congenital Anomaly)
  Sender: FDA-Public Use
  Company Number: A0756634A

PATIENT
  Sex: Male

DRUGS (5)
  1. PAXIL CR [Suspect]
     Indication: BIPOLAR DISORDER
     Dosage: 25MG TWICE PER DAY
     Dates: start: 20050301, end: 20051101
  2. PAXIL [Suspect]
     Indication: BIPOLAR DISORDER
     Dosage: 20MG PER DAY
     Dates: start: 20050301, end: 20051101
  3. METROGEL [Concomitant]
     Dates: start: 20050422
  4. PRENATE [Concomitant]
  5. IRON [Concomitant]

REACTIONS (6)
  - ATRIAL SEPTAL DEFECT [None]
  - CARDIAC DISORDER [None]
  - DRUG EXPOSURE DURING PREGNANCY [None]
  - DYSMORPHISM [None]
  - ORAL DISORDER [None]
  - SPEECH DISORDER DEVELOPMENTAL [None]
